FAERS Safety Report 8554371-5 (Version None)
Quarter: 2012Q3

REPORT INFORMATION
  Report Type: 
  Country: None (occurrence: None)
  Receive Date: 20120731
  Receipt Date: 20120718
  Transmission Date: 20120928
  Serious: Yes (Hospitalization)
  Sender: FDA-Public Use
  Company Number: GB-ROCHE-1050492

PATIENT
  Sex: Male
  Weight: 90 kg

DRUGS (20)
  1. CISPLATIN [Suspect]
     Indication: GASTRIC CANCER
     Dosage: LAST DOSE PRIOR TO SAE: 08/FEB/2012; LAST DOSE: 130 MG
     Route: 042
     Dates: start: 20120208
  2. AVASTIN [Suspect]
     Indication: GASTRIC CANCER
     Dosage: LAST DOSE PRIOR TO SAE WAS UPDATED FROM 08/FEB/2012 TO 21/FEB/2012; LAST DOSE TAKEN: 725 MG; DATE OF
     Route: 042
     Dates: start: 20120208
  3. CISPLATIN [Suspect]
     Dosage: LAST DOSE PRIOR TO SAE: 21/MAR/2012; LAST DOSE: 127 MG
     Route: 042
     Dates: start: 20120209
  4. ONDANSETRON [Concomitant]
     Route: 048
     Dates: start: 20120405
  5. AMLODIPINE [Concomitant]
     Dates: start: 20120203, end: 20120226
  6. DIFFLAM (UNITED KINGDOM) [Concomitant]
     Dosage: 30 MU
     Route: 048
     Dates: start: 20120401
  7. XELODA [Suspect]
     Dosage: DATE OF MOST RECENT DOSE PRIOR TO SAE: 04/APR/2012; LAST DOSE TAKEN: 1000 IN THE MORNING AND 1500 IN
     Route: 048
     Dates: start: 20120209
  8. NORMACOL (UNITED KINGDOM) [Concomitant]
     Dosage: T
     Route: 048
     Dates: start: 20120226
  9. OMEPRAZOLE [Concomitant]
     Route: 048
     Dates: start: 20120222
  10. DOCUSATE SODIUM [Concomitant]
     Route: 048
     Dates: start: 20120405
  11. EPIRUBICIN HYDROCHLORIDE [Suspect]
     Indication: GASTRIC CANCER
     Dosage: LAST DOSE: 108 MG; DATE OF MOST RECENT DOSE WAS UPDATED FROM 8/FEB/2012 TO 21/MAR/2012
     Route: 042
     Dates: start: 20120208
  12. XELODA [Suspect]
     Indication: GASTRIC CANCER
     Dosage: DATE OF MOST RECENT DOSE: 16/FEB/2012; DOSE TAKEN:1500 MG
     Route: 042
     Dates: start: 20120208, end: 20120208
  13. ACETAMINOPHEN AND CODEINE PHOSPHATE [Concomitant]
     Dosage: 11-BD
     Route: 048
     Dates: start: 20120223
  14. XELODA [Suspect]
     Dosage: LAST DOSE TAKEN: 725 MG; DATE OF MOST RECENT DOSE: 4/APR/2012
     Route: 048
     Dates: start: 20120209
  15. OMEPRAZOLE [Concomitant]
     Route: 048
     Dates: start: 19900101
  16. ACETAMINOPHEN AND CODEINE PHOSPHATE [Concomitant]
     Route: 048
     Dates: start: 20120405
  17. CYCLIZINE [Concomitant]
     Route: 048
     Dates: start: 20120405
  18. NORMACOL (UNITED KINGDOM) [Concomitant]
     Route: 048
     Dates: start: 20120405
  19. ACETAMINOPHEN [Concomitant]
     Dates: start: 20120222, end: 20120222
  20. NYSTATIN [Concomitant]
     Dosage: 400000 IV
     Route: 048
     Dates: start: 20120405

REACTIONS (3)
  - CIRCULATORY COLLAPSE [None]
  - CHEST PAIN [None]
  - FATIGUE [None]
